FAERS Safety Report 12959305 (Version 1)
Quarter: 2020Q3

REPORT INFORMATION
  Report Type: Report from Study
  Country: HK (occurrence: HK)
  Receive Date: 20161121
  Receipt Date: 20161121
  Transmission Date: 20201104
  Serious: Yes (Hospitalization)
  Sender: FDA-Public Use
  Company Number: HK-ROCHE-1599085

PATIENT
  Age: 52 Year
  Sex: Female
  Weight: 46 kg

DRUGS (4)
  1. TRAMADOL. [Concomitant]
     Active Substance: TRAMADOL
     Indication: ARTHRALGIA
     Route: 065
     Dates: start: 20150529, end: 20150529
  2. PANADOL (HONG KONG) [Concomitant]
     Indication: ARTHRALGIA
     Route: 065
     Dates: start: 20150529, end: 20150529
  3. PREDNISOLONE. [Concomitant]
     Active Substance: PREDNISOLONE
     Indication: PREMEDICATION
     Route: 065
     Dates: start: 20150621, end: 20150622
  4. ALECTINIB. [Suspect]
     Active Substance: ALECTINIB
     Indication: NON-SMALL CELL LUNG CANCER
     Dosage: DATE OF MOST RECENT DOSE OF ALECTINIB: 23/JUN/2015
     Route: 048
     Dates: start: 20140917, end: 20150623

REACTIONS (1)
  - Pneumonitis [Recovered/Resolved]

NARRATIVE: CASE EVENT DATE: 20150622
